FAERS Safety Report 15292358 (Version 1)
Quarter: 2018Q3

REPORT INFORMATION
  Report Type: Spontaneous
  Country: US (occurrence: US)
  Receive Date: 20180806
  Receipt Date: 20180806
  Transmission Date: 20181010
  Serious: No
  Sender: FDA-Public Use
  Company Number: None

PATIENT
  Age: 53 Year
  Sex: Female

DRUGS (2)
  1. SYNTHROID [Concomitant]
     Active Substance: LEVOTHYROXINE SODIUM
  2. LIOTHYRONINE 5 MCG [Suspect]
     Active Substance: LIOTHYRONINE
     Indication: THYROID DISORDER
     Dosage: ?          QUANTITY:90 TABLET(S);?
     Route: 048
     Dates: start: 20180801, end: 20180803

REACTIONS (3)
  - Sinusitis [None]
  - Secretion discharge [None]
  - Facial pain [None]

NARRATIVE: CASE EVENT DATE: 20180801
